FAERS Safety Report 9685690 (Version 1)
Quarter: 2013Q4

REPORT INFORMATION
  Report Type: Spontaneous
  Country: US (occurrence: US)
  Receive Date: 20131113
  Receipt Date: 20131113
  Transmission Date: 20140711
  Serious: No
  Sender: FDA-Public Use
  Company Number: US-PFIZER INC-2013319153

PATIENT
  Age: 29 Year
  Sex: Male

DRUGS (1)
  1. PRISTIQ [Suspect]
     Dosage: UNK

REACTIONS (9)
  - Anxiety [Unknown]
  - Fatigue [Unknown]
  - Pain [Unknown]
  - Asthenia [Unknown]
  - Insomnia [Unknown]
  - Nervousness [Unknown]
  - Appetite disorder [Unknown]
  - Restlessness [Unknown]
  - Phobia [Unknown]
